FAERS Safety Report 23518445 (Version 1)
Quarter: 2024Q1

REPORT INFORMATION
  Report Type: Spontaneous
  Country: US (occurrence: US)
  Receive Date: 20240213
  Receipt Date: 20240213
  Transmission Date: 20240410
  Serious: Yes (Hospitalization)
  Sender: FDA-Public Use
  Company Number: US-SPECTRUM PHARMACEUTICALS, INC.-US-2024AST000002

PATIENT
  Age: 76 Year
  Sex: Male

DRUGS (3)
  1. ROLVEDON [Suspect]
     Active Substance: EFLAPEGRASTIM-XNST
     Indication: Neutropenia
     Dosage: 13.2 MG, ON DAY 4 OF EACH CYCLE
     Route: 058
     Dates: start: 20231214
  2. FLUOROURACIL\IRINOTECAN\LEUCOVORIN\OXALIPLATIN [Concomitant]
     Active Substance: FLUOROURACIL\IRINOTECAN\LEUCOVORIN\OXALIPLATIN
     Indication: Product used for unknown indication
     Dosage: CYCLE 1, DAY 1
     Route: 065
     Dates: start: 20231211
  3. FLUOROURACIL\IRINOTECAN\LEUCOVORIN\OXALIPLATIN [Concomitant]
     Active Substance: FLUOROURACIL\IRINOTECAN\LEUCOVORIN\OXALIPLATIN
     Dosage: CYCLE 2, DAY 1
     Route: 065
     Dates: start: 20240103

REACTIONS (3)
  - Neutrophil count decreased [Recovering/Resolving]
  - Abdominal pain [Recovering/Resolving]
  - Therapy non-responder [Recovering/Resolving]

NARRATIVE: CASE EVENT DATE: 20231217
